FAERS Safety Report 23622740 (Version 2)
Quarter: 2024Q2

REPORT INFORMATION
  Report Type: Spontaneous
  Country: JP (occurrence: JP)
  Receive Date: 20240312
  Receipt Date: 20240418
  Transmission Date: 20240717
  Serious: No
  Sender: FDA-Public Use
  Company Number: JP-MSD-M2024-08638

PATIENT
  Sex: Female

DRUGS (1)
  1. LAGEVRIO [Suspect]
     Active Substance: MOLNUPIRAVIR
     Indication: COVID-19 treatment
     Dosage: 800 MILLIGRAM, BID
     Route: 048

REACTIONS (3)
  - Vomiting [Unknown]
  - Wrong technique in product usage process [Unknown]
  - Product use complaint [Unknown]
